FAERS Safety Report 5894599-6 (Version None)
Quarter: 2008Q3

REPORT INFORMATION
  Report Type: 
  Country: None (occurrence: None)
  Receive Date: 20080922
  Receipt Date: 20080912
  Transmission Date: 20090109
  Serious: Yes (Hospitalization)
  Sender: FDA-Public Use
  Company Number: 2008AL010484

PATIENT
  Age: 81 Year
  Sex: Female

DRUGS (1)
  1. DIGOXIN [Suspect]
     Dosage: PO; COUPLE OF YEARS
     Route: 048

REACTIONS (1)
  - HEART RATE IRREGULAR [None]
